FAERS Safety Report 7798100-1 (Version None)
Quarter: 2011Q4

REPORT INFORMATION
  Report Type: 
  Country: None (occurrence: None)
  Receive Date: 20111005
  Receipt Date: 20110928
  Transmission Date: 20120403
  Serious: Yes (Hospitalization, Other)
  Sender: FDA-Public Use
  Company Number: CH-ABBOTT-11P-151-0859229-00

PATIENT
  Age: 34 Year
  Sex: Female

DRUGS (23)
  1. QUETIAPINE FUMARATE [Interacting]
     Dosage: 425MG DAILY
     Dates: start: 20110501
  2. QUETIAPINE FUMARATE [Interacting]
     Dates: start: 20110806, end: 20110806
  3. REMERON [Interacting]
     Dates: end: 20110728
  4. QUETIAPINE FUMARATE [Interacting]
     Dosage: 525MG DAILY
     Dates: start: 20110401
  5. QUETIAPINE FUMARATE [Interacting]
     Dosage: 700MG DAILY
     Dates: start: 20110719
  6. REMERON [Interacting]
     Dosage: 15MG DAILY
     Dates: start: 20110815
  7. OXAZEPAM [Interacting]
     Indication: PRODUCT USED FOR UNKNOWN INDICATION
     Route: 048
     Dates: end: 20110818
  8. QUETIAPINE FUMARATE [Interacting]
     Indication: SCHIZOAFFECTIVE DISORDER
     Dosage: 325MG DAILY
  9. QUETIAPINE FUMARATE [Interacting]
     Dosage: APPROXIMATELY 100MG DAILY
     Dates: start: 20100801
  10. QUETIAPINE FUMARATE [Interacting]
     Dates: start: 20110807, end: 20110807
  11. QUETIAPINE FUMARATE [Interacting]
     Dosage: ON DEMAND, ADD'L 4X25MG DAILY, SOMETIMES
     Dates: start: 20110808, end: 20110818
  12. METHADONE HCL [Interacting]
     Indication: MENTAL DISORDER
     Route: 048
  13. LAMIVUDINE [Concomitant]
     Indication: PRODUCT USED FOR UNKNOWN INDICATION
     Route: 048
  14. REYATAZ [Interacting]
     Indication: HIV INFECTION
     Route: 048
  15. METHADONE HCL [Interacting]
     Indication: DRUG DEPENDENCE
  16. REMERON [Interacting]
     Indication: SCHIZOAFFECTIVE DISORDER
     Dosage: 7.5MG DAILY
     Dates: start: 20110808
  17. BIPERIDEN [Concomitant]
     Indication: PRODUCT USED FOR UNKNOWN INDICATION
     Route: 048
     Dates: end: 20110725
  18. NORVIR [Suspect]
     Indication: HIV INFECTION
     Route: 048
  19. ZOLPIDEM TARTRATE [Interacting]
     Indication: PRODUCT USED FOR UNKNOWN INDICATION
     Route: 048
  20. TENOFOVIR DISOPROXIL FUMARATE [Concomitant]
     Indication: PRODUCT USED FOR UNKNOWN INDICATION
     Route: 048
  21. LEVOCETIRIZINE DIHYCHLORIDE [Concomitant]
     Indication: PRODUCT USED FOR UNKNOWN INDICATION
  22. QUETIAPINE FUMARATE [Interacting]
     Dosage: ON DEMAND
     Dates: start: 20110802, end: 20110807
  23. METHADONE HCL [Interacting]
     Indication: ABNORMAL BEHAVIOUR

REACTIONS (6)
  - DRUG INTERACTION [None]
  - BLOOD POTASSIUM INCREASED [None]
  - ALCOHOL ABUSE [None]
  - SEDATION [None]
  - ELECTROCARDIOGRAM QT PROLONGED [None]
  - DRUG LEVEL INCREASED [None]
